FAERS Safety Report 15578968 (Version 1)
Quarter: 2018Q4

REPORT INFORMATION
  Report Type: Spontaneous
  Country: US (occurrence: US)
  Receive Date: 20181102
  Receipt Date: 20181102
  Transmission Date: 20190205
  Serious: No
  Sender: FDA-Public Use
  Company Number: US-TAKEDA-2018TUS031503

PATIENT
  Age: 21 Year
  Sex: Male

DRUGS (1)
  1. ENTYVIO [Suspect]
     Active Substance: VEDOLIZUMAB
     Indication: CROHN^S DISEASE
     Dosage: 300 MG, UNK
     Route: 042

REACTIONS (5)
  - Therapeutic response decreased [Unknown]
  - Feeling hot [Unknown]
  - Panic attack [Unknown]
  - Flushing [Unknown]
  - Palpitations [Unknown]
